FAERS Safety Report 11755395 (Version 1)
Quarter: 2015Q4

REPORT INFORMATION
  Report Type: Spontaneous
  Country: US (occurrence: None)
  Receive Date: 20151118
  Receipt Date: 20151118
  Transmission Date: 20160304
  Serious: No
  Sender: FDA-Public Use
  Company Number: None

PATIENT
  Age: 48 Year
  Sex: Female
  Weight: 61.24 kg

DRUGS (1)
  1. CIPROFLOXACIN. [Suspect]
     Active Substance: CIPROFLOXACIN
     Indication: KIDNEY INFECTION
     Dosage: 1 PILL TWICE DAILY TAKEN BY MOUTH
     Route: 048
     Dates: start: 2001

REACTIONS (11)
  - Impaired work ability [None]
  - Groin pain [None]
  - Rash [None]
  - Back pain [None]
  - Pain in extremity [None]
  - Arthralgia [None]
  - Fatigue [None]
  - Asthenia [None]
  - Headache [None]
  - Pain [None]
  - Weight bearing difficulty [None]

NARRATIVE: CASE EVENT DATE: 20151117
